FAERS Safety Report 5911478-6 (Version None)
Quarter: 2008Q4

REPORT INFORMATION
  Report Type: 
  Country: None (occurrence: None)
  Receive Date: 20081002
  Receipt Date: 20080925
  Transmission Date: 20090506
  Serious: Yes (Hospitalization)
  Sender: FDA-Public Use
  Company Number: FABR-1000367

PATIENT
  Age: 52 Year
  Sex: Male
  Weight: 78 kg

DRUGS (3)
  1. FABRAZYME [Suspect]
     Indication: FABRY'S DISEASE
     Dosage: 80 MG, Q2W, INTRAVENOUS
     Route: 042
     Dates: start: 20050913
  2. FABRAZYME [Suspect]
  3. LASIX [Concomitant]

REACTIONS (9)
  - BLISTER [None]
  - CELLULITIS [None]
  - DRY GANGRENE [None]
  - EXTREMITY NECROSIS [None]
  - FALL [None]
  - LOWER LIMB FRACTURE [None]
  - PERIPHERAL ARTERIAL OCCLUSIVE DISEASE [None]
  - PERIPHERAL ISCHAEMIA [None]
  - TOE AMPUTATION [None]
